FAERS Safety Report 6635465-8 (Version None)
Quarter: 2010Q1

REPORT INFORMATION
  Report Type: 
  Country: None (occurrence: None)
  Receive Date: 20100315
  Receipt Date: 20090812
  Transmission Date: 20100710
  Serious: No
  Sender: FDA-Public Use
  Company Number: US-ABBOTT-09P-163-0591691-00

PATIENT
  Sex: Male
  Weight: 83.99 kg

DRUGS (1)
  1. DEPAKOTE [Suspect]
     Indication: AFFECTIVE DISORDER
     Route: 048
     Dates: start: 20090701

REACTIONS (1)
  - ALOPECIA [None]
